FAERS Safety Report 9504078 (Version 1)
Quarter: 2013Q3

REPORT INFORMATION
  Report Type: Spontaneous
  Country: US (occurrence: US)
  Receive Date: 20130906
  Receipt Date: 20130906
  Transmission Date: 20140515
  Serious: Yes (Death, Other)
  Sender: FDA-Public Use
  Company Number: US-RANBAXY-2013US-72975

PATIENT
  Age: 3 Month
  Sex: Female

DRUGS (6)
  1. PSEUDOEPHEDRINE [Suspect]
     Indication: PRODUCT USED FOR UNKNOWN INDICATION
     Dosage: UNK
     Route: 065
  2. DEXTROMETHORPHAN [Suspect]
     Indication: PRODUCT USED FOR UNKNOWN INDICATION
     Dosage: UNK
     Route: 065
  3. PHENYTOIN [Suspect]
     Indication: TACHYCARDIA
     Dosage: UNK
     Route: 065
  4. PHENYTOIN [Suspect]
     Indication: HYPOTENSION
  5. PHENYTOIN [Suspect]
     Indication: PYREXIA
  6. VIAXIN [Concomitant]
     Indication: PRODUCT USED FOR UNKNOWN INDICATION
     Dosage: UNK
     Route: 065

REACTIONS (3)
  - Toxicity to various agents [Unknown]
  - Pneumonia [Fatal]
  - Hepatic steatosis [Unknown]
